FAERS Safety Report 4819585-6 (Version None)
Quarter: 2005Q4

REPORT INFORMATION
  Report Type: 
  Country: None (occurrence: None)
  Receive Date: 20051102
  Receipt Date: 20051018
  Transmission Date: 20060501
  Serious: Yes (Death)
  Sender: FDA-Public Use
  Company Number: 2005S1008496

PATIENT
  Age: 65 Year
  Sex: Male

DRUGS (8)
  1. CLOZAPINE [Suspect]
     Indication: SCHIZOPHRENIA
     Dosage: 150 + 200 MG/QAM + QD + PO
     Route: 048
  2. DIGOXIN [Concomitant]
  3. LANSOPRAZOLE [Concomitant]
  4. DOCUSATE CALCIUM [Concomitant]
  5. LITHIUM CARBONATE [Concomitant]
  6. IPRATORPIUM BROMODE/SALBUTAMOL SULFATE MONOHYDRATE [Concomitant]
  7. VENLAFAXINE HYDROCHLORIDE [Concomitant]
  8. DOXAZOSIN MESYLATE [Concomitant]

REACTIONS (2)
  - COLITIS ISCHAEMIC [None]
  - SEPSIS [None]
